FAERS Safety Report 6278602-X (Version None)
Quarter: 2009Q3

REPORT INFORMATION
  Report Type: 
  Country: None (occurrence: None)
  Receive Date: 20090722
  Receipt Date: 20090209
  Transmission Date: 20100115
  Serious: No
  Sender: FDA-Public Use
  Company Number: US-BAUSCH-2009BL000580

PATIENT
  Sex: Male

DRUGS (1)
  1. OPCON-A [Suspect]
     Indication: DRUG USE FOR UNKNOWN INDICATION
     Route: 047
     Dates: start: 20090101, end: 20090101

REACTIONS (1)
  - DRUG INEFFECTIVE [None]
